FAERS Safety Report 16139237 (Version 1)
Quarter: 2019Q2

REPORT INFORMATION
  Report Type: Spontaneous
  Country: CA (occurrence: CA)
  Receive Date: 20190401
  Receipt Date: 20190401
  Transmission Date: 20190711
  Serious: Yes (Hospitalization, Other)
  Sender: FDA-Public Use
  Company Number: CA-B.I. PHARMACEUTICALS,INC./RIDGEFIELD-2019-BI-013584

PATIENT
  Age: 70 Year
  Sex: Female

DRUGS (8)
  1. LEVODOPA-CARBIDOPA [Suspect]
     Active Substance: CARBIDOPA\LEVODOPA
     Indication: PARKINSONISM
     Route: 065
  2. NABILONE [Suspect]
     Active Substance: NABILONE
     Indication: PRODUCT USED FOR UNKNOWN INDICATION
     Route: 048
  3. SIFROL [Suspect]
     Active Substance: PRAMIPEXOLE
     Indication: PARKINSONISM
     Route: 065
  4. AMANTADINE. [Suspect]
     Active Substance: AMANTADINE HYDROCHLORIDE
     Indication: PARKINSONISM
     Route: 065
  5. SIFROL [Suspect]
     Active Substance: PRAMIPEXOLE
     Route: 065
  6. SIFROL [Suspect]
     Active Substance: PRAMIPEXOLE
     Route: 065
  7. ENTACAPONE. [Suspect]
     Active Substance: ENTACAPONE
     Indication: PARKINSONISM
     Route: 065
  8. QUETIAPINE. [Concomitant]
     Active Substance: QUETIAPINE
     Indication: PRODUCT USED FOR UNKNOWN INDICATION
     Route: 065

REACTIONS (5)
  - Dystonia [Recovering/Resolving]
  - Psychotic disorder [Recovering/Resolving]
  - Therapeutic response shortened [Recovering/Resolving]
  - Dyskinesia [Recovering/Resolving]
  - Acute psychosis [Recovering/Resolving]
